FAERS Safety Report 20772984 (Version 2)
Quarter: 2022Q2

REPORT INFORMATION
  Report Type: Spontaneous
  Country: JP (occurrence: JP)
  Receive Date: 20220502
  Receipt Date: 20220530
  Transmission Date: 20220721
  Serious: Yes (Other)
  Sender: FDA-Public Use
  Company Number: JP-NBI-J202207583BIPI

PATIENT
  Age: 69 Year
  Sex: Male
  Weight: 67.6 kg

DRUGS (2)
  1. IDARUCIZUMAB [Suspect]
     Active Substance: IDARUCIZUMAB
     Indication: Procoagulant therapy
     Route: 042
     Dates: start: 20220421, end: 20220421
  2. IDARUCIZUMAB [Suspect]
     Active Substance: IDARUCIZUMAB
     Route: 042
     Dates: start: 20220424, end: 20220424

REACTIONS (1)
  - Haemorrhage [Recovered/Resolved]

NARRATIVE: CASE EVENT DATE: 20220424
